FAERS Safety Report 4466061-9 (Version None)
Quarter: 2004Q3

REPORT INFORMATION
  Report Type: 
  Country: None (occurrence: None)
  Receive Date: 20040930
  Receipt Date: 20040920
  Transmission Date: 20050211
  Serious: Yes (Hospitalization)
  Sender: FDA-Public Use
  Company Number: STA-AE-04-MTX-429

PATIENT
  Age: 68 Year
  Sex: Female

DRUGS (19)
  1. RHEUMATREX [Suspect]
     Indication: RHEUMATOID ARTHRITIS
     Dosage: 4 MG 1X PER 1 WK, ORAL
     Route: 048
     Dates: start: 20011001, end: 20020312
  2. RHEUMATREX [Suspect]
     Indication: RHEUMATOID ARTHRITIS
     Dosage: 6 MG 1X PER 1 WK, ORAL
     Route: 048
     Dates: start: 20020312
  3. PREDNISOLONE [Suspect]
     Indication: RHEUMATOID ARTHRITIS
     Dosage: ORAL
     Route: 048
     Dates: start: 20011116, end: 20031203
  4. PREDNISOLONE [Suspect]
     Indication: RHEUMATOID ARTHRITIS
     Dosage: ORAL
     Route: 048
     Dates: start: 20031204, end: 20040413
  5. REMICADE [Suspect]
     Indication: RHEUMATOID ARTHRITIS
     Dosage: INTRAVENOUS
     Route: 042
     Dates: start: 20031119, end: 20031119
  6. REMICADE [Suspect]
     Indication: RHEUMATOID ARTHRITIS
     Dosage: INTRAVENOUS
     Route: 042
     Dates: start: 20031203, end: 20031203
  7. REMICADE [Suspect]
     Indication: RHEUMATOID ARTHRITIS
     Dosage: INTRAVENOUS
     Route: 042
     Dates: start: 20040107, end: 20040107
  8. ZANTAC [Concomitant]
  9. ISONIAZID [Concomitant]
  10. CLARITHROMYCIN [Concomitant]
  11. RIMATIL (BUCILLAMINE) [Concomitant]
  12. LOXONIN (LOXOPROFEN SODIUM) [Concomitant]
  13. VOLTAREN [Concomitant]
  14. AMOBAN (ZOPICLONE) [Concomitant]
  15. KAMAG G (MAGNESIUM OXIDE) [Concomitant]
  16. SELTOUCH (FELBINAC) [Concomitant]
  17. MOHRUS (KETOPROFEN) [Concomitant]
  18. INSULIN HUMAN (INSULIN HUMAN) [Concomitant]
  19. LAXOBERON (SODIUM PICOSULFATE) [Concomitant]

REACTIONS (2)
  - LOSS OF CONSCIOUSNESS [None]
  - PNEUMONIA HAEMOPHILUS [None]
